FAERS Safety Report 9176803 (Version 1)
Quarter: 2013Q1

REPORT INFORMATION
  Report Type: Spontaneous
  Country: US (occurrence: US)
  Receive Date: 20130321
  Receipt Date: 20130321
  Transmission Date: 20140127
  Serious: Yes (Other)
  Sender: FDA-Public Use
  Company Number: PHEH2013US006107

PATIENT
  Sex: Female

DRUGS (12)
  1. LOTREL [Suspect]
     Dosage: UNK UKN, UNK
     Dates: start: 2001, end: 2002
  2. EXFORGE [Suspect]
     Dosage: 1 DF (160MG VALS/5MG AMLO), UNK
     Dates: start: 2002, end: 200308
  3. VITAMIN B 12 [Concomitant]
  4. EFFEXOR XR [Concomitant]
  5. FOLBEE [Concomitant]
  6. MIRAPEX [Concomitant]
  7. OMEPRAZOLE [Concomitant]
  8. PLAVIX [Concomitant]
  9. SEROQUEL [Concomitant]
  10. VITAMIN D3 [Concomitant]
  11. NORCO [Concomitant]
  12. OXYGEN [Concomitant]
     Dosage: UNK UKN, QHS (AT NIGHT)

REACTIONS (5)
  - Multiple sclerosis [Unknown]
  - Gait disturbance [Unknown]
  - Pulmonary embolism [Unknown]
  - Lower limb fracture [Unknown]
  - Fall [Unknown]
